FAERS Safety Report 6695084-4 (Version None)
Quarter: 2010Q2

REPORT INFORMATION
  Report Type: 
  Country: None (occurrence: None)
  Receive Date: 20100423
  Receipt Date: 20100415
  Transmission Date: 20101027
  Serious: Yes (Other)
  Sender: FDA-Public Use
  Company Number: PHHY2010US24253

PATIENT
  Sex: Female
  Weight: 68.027 kg

DRUGS (5)
  1. RECLAST [Suspect]
     Indication: OSTEOPENIA
     Dosage: 5 MG / 100 ML
     Route: 042
     Dates: start: 20100408
  2. NEXIUM [Concomitant]
  3. VYTORIN [Concomitant]
  4. LUNESTA [Concomitant]
  5. CYMBALTA [Concomitant]

REACTIONS (7)
  - ARTHRALGIA [None]
  - HEADACHE [None]
  - INFUSION SITE HAEMATOMA [None]
  - INFUSION SITE PAIN [None]
  - OESOPHAGEAL SPASM [None]
  - PAIN [None]
  - VEIN DISORDER [None]
